FAERS Safety Report 9736697 (Version 1)
Quarter: 2013Q4

REPORT INFORMATION
  Report Type: Spontaneous
  Country: US (occurrence: US)
  Receive Date: 20131206
  Receipt Date: 20131206
  Transmission Date: 20140711
  Serious: No
  Sender: FDA-Public Use
  Company Number: US-GILEAD-2009-0023452

PATIENT
  Sex: Female
  Weight: 96.61 kg

DRUGS (33)
  1. LETAIRIS [Suspect]
     Indication: PULMONARY ARTERIAL HYPERTENSION
     Route: 048
     Dates: start: 20070915
  2. REVATIO [Concomitant]
  3. COUMADIN [Concomitant]
  4. OXYGEN [Concomitant]
  5. GLUCOPHAGE [Concomitant]
  6. VITAMIN D3 [Concomitant]
  7. PRED FORTE [Concomitant]
  8. ZYMAR [Concomitant]
  9. ACULAR [Concomitant]
  10. ALENDRONATE SODIUM [Concomitant]
  11. GLYBURIDE [Concomitant]
  12. DIGOXIN [Concomitant]
  13. CLARITIN-D [Concomitant]
  14. OMEGA 3 [Concomitant]
  15. CARDIZEM [Concomitant]
  16. PREVACID [Concomitant]
  17. TRAMADOL [Concomitant]
  18. SPIRONOLACTONE [Concomitant]
  19. VITAMIN B-12 [Concomitant]
  20. ACTOS [Concomitant]
  21. ALBUTEROL [Concomitant]
  22. MAGNESIUM [Concomitant]
  23. CENTRUM SILVER [Concomitant]
  24. CLONAZEPAM [Concomitant]
  25. FLONASE [Concomitant]
  26. WELLBUTRIN [Concomitant]
  27. ADVAIR [Concomitant]
  28. MIRAPEX [Concomitant]
  29. LIPITOR [Concomitant]
  30. SINGULAIR [Concomitant]
  31. TORSEMIDE [Concomitant]
  32. CALCIUM CITRATE [Concomitant]
  33. CARDIZEM [Concomitant]

REACTIONS (1)
  - Blood count abnormal [Unknown]
